FAERS Safety Report 6440456-6 (Version None)
Quarter: 2009Q4

REPORT INFORMATION
  Report Type: 
  Country: None (occurrence: None)
  Receive Date: 20091113
  Receipt Date: 20091103
  Transmission Date: 20100525
  Serious: Yes (Other)
  Sender: FDA-Public Use
  Company Number: US-ABBOTT-09P-163-0581205-00

PATIENT
  Sex: Female
  Weight: 77.18 kg

DRUGS (1)
  1. HUMIRA [Suspect]
     Indication: CROHN'S DISEASE
     Route: 058
     Dates: start: 20090228, end: 20090618

REACTIONS (4)
  - ABDOMINAL ABSCESS [None]
  - GALLBLADDER DISORDER [None]
  - PAIN [None]
  - POST PROCEDURAL COMPLICATION [None]
